FAERS Safety Report 7593943-1 (Version None)
Quarter: 2011Q3

REPORT INFORMATION
  Report Type: 
  Country: None (occurrence: None)
  Receive Date: 20110706
  Receipt Date: 20110627
  Transmission Date: 20111222
  Serious: Yes (Hospitalization, Other)
  Sender: FDA-Public Use
  Company Number: US-ASTRAZENECA-2011SE16815

PATIENT
  Age: 55 Year
  Sex: Male
  Weight: 300 kg

DRUGS (16)
  1. SEROQUEL [Suspect]
     Indication: SCHIZOPHRENIA
     Route: 048
     Dates: start: 20070101
  2. HYDROCHLOROTHIAZIDE [Concomitant]
     Indication: FLUID RETENTION
  3. SOMA [Concomitant]
     Indication: MUSCLE SPASMS
  4. NORVASC [Concomitant]
  5. TAMZOPAM [Concomitant]
     Indication: SLEEP DISORDER
  6. DEXILANT [Concomitant]
     Indication: DYSPEPSIA
  7. OMEPRAZOLE [Concomitant]
     Indication: GASTROOESOPHAGEAL REFLUX DISEASE
  8. GLIMEPIRIDE [Concomitant]
     Indication: BLOOD INSULIN
  9. HYDROCODONE BITARTRATE [Concomitant]
     Indication: PAIN
  10. CITALOPRAM HYDROBROMIDE [Concomitant]
  11. COUMADIN [Concomitant]
     Dosage: 4 MG MWF AND 3.5 MG ALL DAYS
  12. SEROQUEL [Suspect]
     Indication: PSYCHOTIC DISORDER
     Route: 048
     Dates: start: 20070101
  13. TRAZODONE HCL [Concomitant]
     Indication: SUICIDAL IDEATION
  14. HUMULIN R [Concomitant]
     Indication: BLOOD INSULIN
     Dosage: DAILY
  15. METOPROLOL SUCCINATE [Concomitant]
     Indication: BLOOD PRESSURE ABNORMAL
  16. LANTUS [Concomitant]
     Indication: DIABETES MELLITUS

REACTIONS (3)
  - INCORRECT DOSE ADMINISTERED [None]
  - DIVERTICULITIS [None]
  - COLECTOMY [None]
